FAERS Safety Report 10076489 (Version 1)
Quarter: 2014Q2

REPORT INFORMATION
  Report Type: Spontaneous
  Country: US (occurrence: US)
  Receive Date: 20140414
  Receipt Date: 20140414
  Transmission Date: 20141212
  Serious: No
  Sender: FDA-Public Use
  Company Number: US-BAYER-2014-054841

PATIENT
  Age: 69 Year
  Sex: Female
  Weight: 77 kg

DRUGS (4)
  1. ALEVE CAPLET [Suspect]
     Dosage: 2 DF, UNK
     Route: 048
  2. INSULIN [Concomitant]
     Dosage: UNK
  3. ATENOLOL [Concomitant]
     Dosage: UNK
  4. METFORMIN [Concomitant]
     Dosage: UNK

REACTIONS (1)
  - Pruritus generalised [Not Recovered/Not Resolved]
